FAERS Safety Report 25472992 (Version 1)
Quarter: 2025Q2

REPORT INFORMATION
  Report Type: Spontaneous
  Country: US (occurrence: None)
  Receive Date: 20250623
  Receipt Date: 20250623
  Transmission Date: 20250716
  Serious: Yes (Hospitalization)
  Sender: FDA-CTU
  Company Number: None

PATIENT
  Age: 71 Year
  Sex: Female
  Weight: 59.9 kg

DRUGS (2)
  1. ENFORTUMAB VEDOTIN [Suspect]
     Active Substance: ENFORTUMAB VEDOTIN
     Indication: Transitional cell cancer of the renal pelvis and ureter
     Route: 042
     Dates: start: 20250311, end: 20250429
  2. Stereotactic Body Radiation Therapy (SBRT) [Concomitant]
     Dates: start: 20250513, end: 20250523

REACTIONS (6)
  - Bladder operation [None]
  - Decreased appetite [None]
  - Nausea [None]
  - Vomiting [None]
  - Constipation [None]
  - Flatulence [None]

NARRATIVE: CASE EVENT DATE: 20250622
